FAERS Safety Report 7709404-2 (Version None)
Quarter: 2011Q3

REPORT INFORMATION
  Report Type: 
  Country: None (occurrence: None)
  Receive Date: 20110825
  Receipt Date: 20100823
  Transmission Date: 20111222
  Serious: Yes (Death, Hospitalization)
  Sender: FDA-Public Use
  Company Number: RU-UCBSA-009127

PATIENT
  Sex: Female
  Weight: 65.3 kg

DRUGS (9)
  1. PREDNISOLONE [Concomitant]
     Route: 048
     Dates: start: 20030401, end: 20100316
  2. METHOTREXATE [Concomitant]
     Route: 048
     Dates: start: 20030401, end: 20100316
  3. CERTOLIZUMAB PEGOL [Suspect]
     Route: 058
     Dates: start: 20060613
  4. DICLOFENAC SODIUM [Concomitant]
     Route: 048
     Dates: start: 20030401, end: 20100316
  5. PYRIDOXIN [Concomitant]
     Route: 048
     Dates: start: 20080219, end: 20081123
  6. ALMAGEL [Concomitant]
     Dosage: 3 SPOONS/DAY
     Route: 048
     Dates: start: 20030401, end: 20061210
  7. CERTOLIZUMAB PEGOL [Suspect]
     Indication: RHEUMATOID ARTHRITIS
     Dosage: CDP870-050
     Route: 058
     Dates: start: 20051226, end: 20060613
  8. CERTOLIZUMAB PEGOL [Suspect]
     Route: 058
  9. ISONIAZID [Concomitant]
     Dosage: 0.3 G/DAY
     Route: 048
     Dates: start: 20080219, end: 20081123

REACTIONS (1)
  - CEREBRAL HAEMORRHAGE [None]
